FAERS Safety Report 5457465-6 (Version None)
Quarter: 2007Q3

REPORT INFORMATION
  Report Type: 
  Country: None (occurrence: None)
  Receive Date: 20070813
  Receipt Date: 20070103
  Transmission Date: 20080115
  Serious: Yes (Hospitalization)
  Sender: FDA-Public Use
  Company Number: 20073435

PATIENT
  Sex: Male

DRUGS (11)
  1. LIORESAL [Suspect]
     Indication: MUSCLE SPASTICITY
     Dosage: MCG,DAILY,INTRATHECAL
     Route: 037
  2. LIORESAL [Concomitant]
     Indication: MUSCLE SPASTICITY
     Dosage: MCG,DAILY,INTRATHECAL
     Route: 037
  3. NEURONTIN [Concomitant]
  4. VALIUM [Concomitant]
  5. GUIAPHENASIN [Concomitant]
  6. SINGULAIR [Concomitant]
  7. ZYRTEC [Concomitant]
  8. PRILOSEC [Concomitant]
  9. NASACORT [Concomitant]
  10. ASTELIN [Concomitant]
  11. FLOVENT [Concomitant]

REACTIONS (5)
  - CONSTIPATION [None]
  - GAIT DISTURBANCE [None]
  - HEADACHE [None]
  - HYPOTONIA [None]
  - NAUSEA [None]
